FAERS Safety Report 23356873 (Version 2)
Quarter: 2024Q1

REPORT INFORMATION
  Report Type: Other
  Country: FR (occurrence: FR)
  Receive Date: 20240102
  Receipt Date: 20240116
  Transmission Date: 20240410
  Serious: Yes (Life-Threatening, Hospitalization, Other)
  Sender: FDA-Public Use
  Company Number: None

PATIENT
  Age: 2 Year
  Sex: Male
  Weight: 10 kg

DRUGS (13)
  1. IBUPROFEN [Suspect]
     Active Substance: IBUPROFEN
     Indication: Pain
     Dosage: UNK
     Route: 065
     Dates: start: 20231118, end: 20231120
  2. GENTAMICIN [Suspect]
     Active Substance: GENTAMICIN
     Indication: Hyperthermia
     Dosage: 5 MILLIGRAM/KILOGRAM, 1 TOTAL
     Route: 042
     Dates: start: 20231120, end: 20231120
  3. CLONIDINE [Suspect]
     Active Substance: CLONIDINE
     Indication: Dystonia
     Dosage: 10 MICROGRAM/KILOGRAM, QD, SOLUTION FOR INJECTION
     Route: 042
     Dates: start: 20231117, end: 20231117
  4. CLONIDINE [Suspect]
     Active Substance: CLONIDINE
     Dosage: 1 MICROGRAM/KILOGRAM, QD, BREAKABLE TABLET
     Route: 048
     Dates: start: 20231118, end: 20231120
  5. CEFTRIAXONE SODIUM [Suspect]
     Active Substance: CEFTRIAXONE SODIUM
     Indication: Hyperthermia
     Dosage: 100 MILLIGRAM/KILOGRAM, 1 TOTAL
     Route: 042
     Dates: start: 20231120, end: 20231120
  6. RIVOTRIL [Suspect]
     Active Substance: CLONAZEPAM
     Indication: Dystonia
     Dosage: 1 DROP, EVERY 12 HRS
     Route: 048
     Dates: start: 20231114, end: 20231116
  7. RIVOTRIL [Suspect]
     Active Substance: CLONAZEPAM
     Dosage: 1 DROP, EVERY 8 HRS, 2,5 MG/ML; ORAL SOLUTION DROP
     Route: 048
     Dates: start: 20231118, end: 20231120
  8. RIVOTRIL [Suspect]
     Active Substance: CLONAZEPAM
     Dosage: 1 DROP, QD
     Route: 048
     Dates: end: 20231113
  9. VANCOMYCIN [Suspect]
     Active Substance: VANCOMYCIN
     Indication: Hyperthermia
     Dosage: 40 MILLIGRAM/KILOGRAM, 1 TOTAL
     Route: 042
     Dates: start: 20231120, end: 20231120
  10. ACETAMINOPHEN [Suspect]
     Active Substance: ACETAMINOPHEN
     Indication: Pain
     Dosage: UNK
     Route: 048
     Dates: start: 20231102, end: 20231123
  11. AMITRIPTYLINE HYDROCHLORIDE [Suspect]
     Active Substance: AMITRIPTYLINE HYDROCHLORIDE
     Indication: Dystonia
     Dosage: 2 DROP, EVERY 8 HRS, 40 MG/ML, DRINKABLE SOLUTION
     Route: 048
     Dates: end: 20231120
  12. DOLIPRANE [Concomitant]
     Active Substance: ACETAMINOPHEN
     Indication: Product used for unknown indication
     Dosage: UNK
     Route: 065
  13. TRAMADOL [Concomitant]
     Active Substance: TRAMADOL\TRAMADOL HYDROCHLORIDE
     Indication: Product used for unknown indication
     Dosage: UNK
     Route: 065

REACTIONS (9)
  - Hyperthermia [Recovered/Resolved]
  - Hepatocellular injury [Recovered/Resolved]
  - Bradycardia [Recovered/Resolved]
  - Incorrect dose administered [Recovered/Resolved]
  - Accidental overdose [Recovered/Resolved]
  - Acute kidney injury [Recovered/Resolved]
  - Hypotension [Recovered/Resolved]
  - Off label use [Unknown]
  - Off label use [Unknown]

NARRATIVE: CASE EVENT DATE: 20231117
